FAERS Safety Report 10038773 (Version 1)
Quarter: 2014Q1

REPORT INFORMATION
  Report Type: Spontaneous
  Country: US (occurrence: None)
  Receive Date: 20140306
  Receipt Date: 20140306
  Transmission Date: 20141002
  Serious: Yes (Other)
  Sender: FDA-Public Use
  Company Number: 163-21880-13050848

PATIENT
  Age: 54 Year
  Sex: Female

DRUGS (8)
  1. REVLIMID (LENALIDOMIDE) (10 MILLIGRAM, CAPSULES) [Suspect]
     Indication: PLASMA CELL MYELOMA
     Route: 048
     Dates: start: 20110121
  2. ASPIRIN (ACETYLSALICYLIC ACID) [Concomitant]
  3. ACYCLOVIR (ACICLOVIR) [Concomitant]
  4. COMBIVENT (COMBIVENT) [Concomitant]
  5. OMEPRAZOLE (OMEPRAZOLE) [Concomitant]
  6. PAROXETINE (PAROXETINE) [Concomitant]
  7. FUROSEMIDE (FUROSEMIDE) [Concomitant]
  8. OXYCODONE (OXYCODONE) [Concomitant]

REACTIONS (2)
  - Contusion [None]
  - Respiratory disorder [None]
